FAERS Safety Report 20227645 (Version 1)
Quarter: 2021Q4

REPORT INFORMATION
  Report Type: Spontaneous
  Country: CA (occurrence: CA)
  Receive Date: 20211224
  Receipt Date: 20211224
  Transmission Date: 20220303
  Serious: Yes (Other)
  Sender: FDA-Public Use
  Company Number: CA-TAKEDA-2021TUS081097

PATIENT
  Age: 51 Year
  Sex: Female
  Weight: 68 kg

DRUGS (12)
  1. ENTYVIO [Suspect]
     Active Substance: VEDOLIZUMAB
     Indication: Colitis ulcerative
     Dosage: UNK
     Route: 065
  2. Reactine [Concomitant]
     Dosage: UNK
  3. Salofalk [Concomitant]
     Dosage: UNK
  4. MIRVALA 21 [Concomitant]
     Dosage: UNK
  5. INFLECTRA [Concomitant]
     Active Substance: INFLIXIMAB-DYYB
     Indication: Colitis ulcerative
     Dosage: 400 MILLIGRAM
     Route: 042
     Dates: start: 20210322
  6. INFLECTRA [Concomitant]
     Active Substance: INFLIXIMAB-DYYB
     Indication: Ankylosing spondylitis
     Dosage: 400 MILLIGRAM
     Route: 042
     Dates: start: 20210405
  7. INFLECTRA [Concomitant]
     Active Substance: INFLIXIMAB-DYYB
     Dosage: 400 MILLIGRAM
     Route: 042
     Dates: start: 20210514
  8. INFLECTRA [Concomitant]
     Active Substance: INFLIXIMAB-DYYB
     Dosage: 500 MILLIGRAM, Q6WEEKS
     Route: 042
     Dates: start: 20210615
  9. INFLECTRA [Concomitant]
     Active Substance: INFLIXIMAB-DYYB
     Dosage: 500 MILLIGRAM, Q6WEEKS
     Route: 042
     Dates: start: 20210727
  10. INFLECTRA [Concomitant]
     Active Substance: INFLIXIMAB-DYYB
     Dosage: 500 MILLIGRAM, Q6WEEKS
     Route: 042
     Dates: start: 20210907
  11. INFLECTRA [Concomitant]
     Active Substance: INFLIXIMAB-DYYB
     Dosage: 500 MILLIGRAM, Q6WEEKS
     Route: 042
     Dates: start: 20211019
  12. INFLECTRA [Concomitant]
     Active Substance: INFLIXIMAB-DYYB
     Dosage: 500 MILLIGRAM, Q6WEEKS
     Route: 042
     Dates: start: 20211019

REACTIONS (2)
  - Colitis ulcerative [Unknown]
  - Upper respiratory tract infection [Recovered/Resolved]

NARRATIVE: CASE EVENT DATE: 20210403
